FAERS Safety Report 16408014 (Version 1)
Quarter: 2019Q2

REPORT INFORMATION
  Report Type: Spontaneous
  Country: US (occurrence: US)
  Receive Date: 20190610
  Receipt Date: 20190610
  Transmission Date: 20190711
  Serious: No
  Sender: FDA-Public Use
  Company Number: US-PRINSTON PHARMACEUTICAL INC.-2019PRN00272

PATIENT
  Age: 68 Year
  Sex: Female
  Weight: 62.13 kg

DRUGS (11)
  1. IBUPROFEN. [Concomitant]
     Active Substance: IBUPROFEN
     Dosage: UNK, AS NEEDED
  2. PEPCID COMPLETE [Concomitant]
     Active Substance: CALCIUM CARBONATE\FAMOTIDINE\MAGNESIUM HYDROXIDE
  3. D-MANNOSE [Concomitant]
     Dosage: UNK, 3X/DAY
  4. COCONUT OIL [Concomitant]
     Active Substance: COCONUT OIL
  5. VITAMIN K2 [Concomitant]
     Active Substance: MENAQUINONE 6
  6. DULOXETINE. [Suspect]
     Active Substance: DULOXETINE
     Indication: FIBROMYALGIA
     Dosage: 20 MG, 1X/DAY IN THE EVENING AROUND 6 PM
     Route: 048
     Dates: start: 201812, end: 20190218
  7. LEVOTHYROXINE. [Concomitant]
     Active Substance: LEVOTHYROXINE
  8. KEFLEX [Concomitant]
     Active Substance: CEPHALEXIN
     Dosage: 250 MG, 3X/WEEK
  9. FLONSAE [Concomitant]
     Dosage: UNK UNK, 1X/DAY
  10. HYDROCODONE-ACETAMINOPHEN [Concomitant]
     Active Substance: ACETAMINOPHEN\HYDROCODONE
  11. VITAMIN D3 [Concomitant]
     Active Substance: CHOLECALCIFEROL

REACTIONS (3)
  - Eye pain [Recovered/Resolved]
  - Intraocular pressure increased [Unknown]
  - Off label use [Recovered/Resolved]

NARRATIVE: CASE EVENT DATE: 201812
